FAERS Safety Report 12291961 (Version 1)
Quarter: 2016Q2

REPORT INFORMATION
  Report Type: Report from Study
  Country: US (occurrence: US)
  Receive Date: 20160421
  Receipt Date: 20160421
  Transmission Date: 20160815
  Serious: No
  Sender: FDA-Public Use
  Company Number: US-AMGEN-USASL2016032713

PATIENT
  Age: 78 Year
  Sex: Female
  Weight: 65.3 kg

DRUGS (1)
  1. REPATHA [Suspect]
     Active Substance: EVOLOCUMAB
     Indication: PRODUCT USED FOR UNKNOWN INDICATION
     Dosage: 140 MG/ML, UNK
     Route: 065
     Dates: start: 20160128

REACTIONS (7)
  - Injection site pain [Unknown]
  - Pain in extremity [Unknown]
  - Back pain [Unknown]
  - Rash pruritic [Recovered/Resolved]
  - Needle issue [Unknown]
  - Arthralgia [Unknown]
  - Urticaria [Recovered/Resolved]

NARRATIVE: CASE EVENT DATE: 20160128
